FAERS Safety Report 15864276 (Version 1)
Quarter: 2019Q1

REPORT INFORMATION
  Report Type: Spontaneous
  Country: US (occurrence: US)
  Receive Date: 20190124
  Receipt Date: 20190124
  Transmission Date: 20190417
  Serious: No
  Sender: FDA-Public Use
  Company Number: US-DERMIRA, INC.-US-2018DER000032

PATIENT

DRUGS (1)
  1. QBREXZA [Suspect]
     Active Substance: GLYCOPYRRONIUM TOSYLATE
     Indication: HYPERHIDROSIS
     Dosage: UNK UNK, QD
     Route: 061
     Dates: start: 201810, end: 201810

REACTIONS (4)
  - Constipation [Recovered/Resolved]
  - Oropharyngeal pain [Recovered/Resolved]
  - Dry mouth [Recovered/Resolved]
  - Urinary retention [Recovered/Resolved]

NARRATIVE: CASE EVENT DATE: 201810
